FAERS Safety Report 13863653 (Version 1)
Quarter: 2017Q3

REPORT INFORMATION
  Report Type: Spontaneous
  Country: US (occurrence: US)
  Receive Date: 20170814
  Receipt Date: 20170814
  Transmission Date: 20171127
  Serious: Yes (Other)
  Sender: FDA-Public Use
  Company Number: US-APOTEX-2017AP016388

PATIENT

DRUGS (4)
  1. OCTREOTIDE                         /00821002/ [Concomitant]
     Active Substance: OCTREOTIDE ACETATE
     Indication: PRODUCT USED FOR UNKNOWN INDICATION
     Dosage: 30 MG, EVERY 4 WEEK
     Route: 065
  2. CITALOPRAM [Suspect]
     Active Substance: CITALOPRAM HYDROBROMIDE
     Indication: ANXIETY
     Dosage: 20 MG, EVERY DAY
     Route: 065
  3. OCTREOTIDE                         /00821002/ [Concomitant]
     Active Substance: OCTREOTIDE ACETATE
     Dosage: 40 MG, EVERY 3 WEEK
     Route: 065
  4. CITALOPRAM [Suspect]
     Active Substance: CITALOPRAM HYDROBROMIDE
     Indication: DEPRESSION
     Dosage: 10 MG, EVERY DAY
     Route: 065

REACTIONS (3)
  - Carcinoid syndrome [Recovering/Resolving]
  - Condition aggravated [Recovering/Resolving]
  - Drug-disease interaction [Recovering/Resolving]
